FAERS Safety Report 7611894-0 (Version None)
Quarter: 2011Q3

REPORT INFORMATION
  Report Type: 
  Country: None (occurrence: None)
  Receive Date: 20110715
  Receipt Date: 20110712
  Transmission Date: 20111222
  Serious: Yes (Hospitalization)
  Sender: FDA-Public Use
  Company Number: US-ROXANE LABORATORIES, INC.-2011-RO-00994RO

PATIENT
  Age: 76 Year
  Sex: Female

DRUGS (4)
  1. PREDNISONE [Suspect]
     Indication: ADVERSE DRUG REACTION
     Route: 048
     Dates: start: 20110602, end: 20110608
  2. BLOOD PRESSURE MEDICATION [Concomitant]
     Indication: HYPERTENSION
  3. SYMBICORT [Concomitant]
  4. THYROID MEDICATION [Concomitant]
     Indication: THYROID DISORDER

REACTIONS (1)
  - DIVERTICULITIS [None]
